FAERS Safety Report 16315268 (Version 3)
Quarter: 2019Q3

REPORT INFORMATION
  Report Type: Spontaneous
  Country: US (occurrence: US)
  Receive Date: 20190515
  Receipt Date: 20190809
  Transmission Date: 20191004
  Serious: Yes (Hospitalization, Other)
  Sender: FDA-Public Use
  Company Number: US-PFIZER INC-2019200599

PATIENT
  Age: 60 Year
  Sex: Male
  Weight: 113 kg

DRUGS (10)
  1. XELJANZ [Suspect]
     Active Substance: TOFACITINIB CITRATE
     Indication: PAROPHTHALMIA
     Dosage: 5 MG, 2X/DAY
     Dates: start: 20190425, end: 20190525
  2. XELJANZ [Suspect]
     Active Substance: TOFACITINIB CITRATE
     Indication: AXILLARY WEB SYNDROME
  3. XELJANZ [Suspect]
     Active Substance: TOFACITINIB CITRATE
     Indication: PERICARDITIS
  4. XELJANZ [Suspect]
     Active Substance: TOFACITINIB CITRATE
     Indication: CHRONIC OBSTRUCTIVE PULMONARY DISEASE
  5. XELJANZ [Suspect]
     Active Substance: TOFACITINIB CITRATE
     Indication: AUTOINFLAMMATORY DISEASE
     Dosage: 5 MG, 2X/DAY
     Dates: start: 20190401, end: 20190429
  6. XELJANZ [Suspect]
     Active Substance: TOFACITINIB CITRATE
     Indication: THROMBOSIS
  7. XELJANZ [Suspect]
     Active Substance: TOFACITINIB CITRATE
     Indication: SKIN DISORDER
  8. XELJANZ [Suspect]
     Active Substance: TOFACITINIB CITRATE
     Indication: GASTROINTESTINAL DISORDER
  9. XELJANZ [Suspect]
     Active Substance: TOFACITINIB CITRATE
     Indication: BRONCHITIS
  10. XELJANZ [Suspect]
     Active Substance: TOFACITINIB CITRATE
     Indication: ASTHMA

REACTIONS (12)
  - Asthenia [Not Recovered/Not Resolved]
  - Pericarditis [Not Recovered/Not Resolved]
  - Bronchitis [Not Recovered/Not Resolved]
  - Gastrointestinal disorder [Unknown]
  - Chronic obstructive pulmonary disease [Unknown]
  - Off label use [Unknown]
  - Skin disorder [Unknown]
  - Asthma [Not Recovered/Not Resolved]
  - Disease recurrence [Not Recovered/Not Resolved]
  - Drug effective for unapproved indication [Not Recovered/Not Resolved]
  - Thrombosis [Unknown]
  - Neuromyopathy [Unknown]

NARRATIVE: CASE EVENT DATE: 20190510
